FAERS Safety Report 18198528 (Version 1)
Quarter: 2020Q3

REPORT INFORMATION
  Report Type: Spontaneous
  Country: JP (occurrence: JP)
  Receive Date: 20200826
  Receipt Date: 20200826
  Transmission Date: 20201103
  Serious: Yes (Death, Life-Threatening)
  Sender: FDA-Public Use
  Company Number: JP-ASTRAZENECA-2020SF07172

PATIENT
  Age: 55 Year
  Sex: Female

DRUGS (1)
  1. LYNPARZA [Suspect]
     Active Substance: OLAPARIB
     Indication: OVARIAN CANCER STAGE IV
     Dosage: DOSE UNKNOWN
     Route: 048

REACTIONS (2)
  - Malignant neoplasm progression [Fatal]
  - Anaemia [Unknown]
